FAERS Safety Report 8729963 (Version 2)
Quarter: 2012Q4

REPORT INFORMATION
  Report Type: Report from Study
  Country: US (occurrence: US)
  Receive Date: 20120817
  Receipt Date: 20120914
  Transmission Date: 20130627
  Serious: Yes (Death, Hospitalization)
  Sender: FDA-Public Use
  Company Number: US-ROCHE-1082651

PATIENT
  Age: 62 Year
  Sex: Male
  Weight: 64.92 kg

DRUGS (2)
  1. AVASTIN [Suspect]
     Indication: COLORECTAL CANCER
     Route: 042
     Dates: end: 201207
  2. FLUOROURACIL [Concomitant]
     Indication: COLORECTAL CANCER
     Route: 042

REACTIONS (4)
  - Death [Fatal]
  - Dehydration [Recovered/Resolved]
  - Diarrhoea [Recovered/Resolved]
  - Asthenia [Unknown]
